FAERS Safety Report 16708166 (Version 2)
Quarter: 2020Q3

REPORT INFORMATION
  Report Type: Report from Study
  Country: None (occurrence: CA)
  Receive Date: 20190815
  Receipt Date: 20200811
  Transmission Date: 20201102
  Serious: Yes (Other)
  Sender: FDA-Public Use
  Company Number: CA-ABBVIE-19K-028-2885576-00

PATIENT
  Age: 26 Year
  Sex: Female

DRUGS (1)
  1. HUMIRA [Suspect]
     Active Substance: ADALIMUMAB
     Indication: CROHN^S DISEASE
     Route: 058
     Dates: start: 20150521

REACTIONS (7)
  - Endometriosis [Not Recovered/Not Resolved]
  - Fistula [Not Recovered/Not Resolved]
  - Adhesion [Unknown]
  - Haemorrhage [Unknown]
  - Abscess [Not Recovered/Not Resolved]
  - Wound [Not Recovered/Not Resolved]
  - Obstruction [Unknown]

NARRATIVE: CASE EVENT DATE: 201906
